FAERS Safety Report 9506547 (Version 1)
Quarter: 2013Q1

REPORT INFORMATION
  Report Type: Spontaneous
  Country: US (occurrence: None)
  Receive Date: 20130305
  Receipt Date: 20130305
  Transmission Date: 20140127
  Serious: Yes (Hospitalization, Other)
  Sender: FDA-Public Use
  Company Number: 163-21880-12030187

PATIENT
  Age: 78 Year
  Sex: Male
  Weight: 77.11 kg

DRUGS (1)
  1. REVLIMID [Suspect]
     Indication: PLASMA CELL MYELOMA
     Dosage: 10 MG, FOR 14 DAYS ; 14 DAYS OFF, PO
     Route: 048
     Dates: start: 20120209, end: 2012

REACTIONS (3)
  - Neutropenia [None]
  - Pyrexia [None]
  - Device related infection [None]
